FAERS Safety Report 6229718-5 (Version None)
Quarter: 2009Q2

REPORT INFORMATION
  Report Type: 
  Country: None (occurrence: None)
  Receive Date: 20090615
  Receipt Date: 20090605
  Transmission Date: 20091009
  Serious: Yes (Hospitalization, Other)
  Sender: FDA-Public Use
  Company Number: US-MERCK-0705USA02815

PATIENT
  Age: 61 Year
  Sex: Female
  Weight: 55 kg

DRUGS (7)
  1. FOSAMAX [Suspect]
     Indication: OSTEOPOROSIS
     Route: 048
     Dates: start: 19960701, end: 20020701
  2. FOSAMAX [Suspect]
     Route: 048
     Dates: start: 20020701, end: 20070201
  3. PREMARIN [Concomitant]
     Route: 065
     Dates: start: 19880101, end: 20050101
  4. FLEXERIL [Concomitant]
     Route: 065
     Dates: start: 19960101
  5. VERAPAMIL [Concomitant]
     Route: 065
     Dates: start: 19960101
  6. LANOXIN [Concomitant]
     Route: 065
     Dates: start: 19960101
  7. PRILOSEC [Concomitant]
     Route: 065
     Dates: start: 19960101

REACTIONS (76)
  - ABSCESS JAW [None]
  - ADHESION [None]
  - ADVERSE DRUG REACTION [None]
  - ANAEMIA OF CHRONIC DISEASE [None]
  - ANXIETY [None]
  - AORTIC STENOSIS [None]
  - ARRHYTHMIA [None]
  - ARTHRALGIA [None]
  - ATRIAL FIBRILLATION [None]
  - BONE DENSITY DECREASED [None]
  - BRONCHITIS [None]
  - BRUXISM [None]
  - CARDIAC FAILURE [None]
  - CARDIAC FAILURE CONGESTIVE [None]
  - CARDIAC MURMUR [None]
  - CARDIOMYOPATHY [None]
  - CATARACT [None]
  - CHEST DISCOMFORT [None]
  - CHOLECYSTITIS ACUTE [None]
  - CHOLELITHIASIS [None]
  - CHRONIC OBSTRUCTIVE PULMONARY DISEASE [None]
  - CONTUSION [None]
  - CORONARY ARTERY DISEASE [None]
  - DEPRESSION [None]
  - DRUG HYPERSENSITIVITY [None]
  - DRUG INTOLERANCE [None]
  - DYSPNOEA [None]
  - EATING DISORDER [None]
  - FACIAL PAIN [None]
  - FALL [None]
  - FATIGUE [None]
  - FEMUR FRACTURE [None]
  - GINGIVITIS [None]
  - HEADACHE [None]
  - HEPATITIS [None]
  - HERPES SIMPLEX [None]
  - HERPES ZOSTER [None]
  - HYPONATRAEMIA [None]
  - IMMUNOSUPPRESSION [None]
  - INSOMNIA [None]
  - IRON DEFICIENCY ANAEMIA [None]
  - JAW DISORDER [None]
  - JAW FRACTURE [None]
  - LOBAR PNEUMONIA [None]
  - LUMBAR RADICULOPATHY [None]
  - MARBURG DISEASE [None]
  - MELAENA [None]
  - MITRAL VALVE INCOMPETENCE [None]
  - MITRAL VALVE PROLAPSE [None]
  - NASOPHARYNGITIS [None]
  - NECK PAIN [None]
  - NEOPLASM [None]
  - NERVE ROOT LESION [None]
  - ORAL INFECTION [None]
  - OSTEOARTHRITIS [None]
  - OSTEOMYELITIS [None]
  - OSTEONECROSIS [None]
  - OTITIS MEDIA [None]
  - PAIN [None]
  - PELVIC FRACTURE [None]
  - PEPTIC ULCER [None]
  - POOR DENTAL CONDITION [None]
  - POST HERPETIC NEURALGIA [None]
  - POST THROMBOTIC SYNDROME [None]
  - PYREXIA [None]
  - RESORPTION BONE INCREASED [None]
  - RHINITIS ALLERGIC [None]
  - RHINITIS PERENNIAL [None]
  - SCIATICA [None]
  - SINUS DISORDER [None]
  - SINUSITIS [None]
  - TOOTH ABSCESS [None]
  - TRANSIENT ISCHAEMIC ATTACK [None]
  - TRAUMATIC BRAIN INJURY [None]
  - TYMPANIC MEMBRANE DISORDER [None]
  - WEIGHT DECREASED [None]
